FAERS Safety Report 8762236 (Version 1)
Quarter: 2012Q4

REPORT INFORMATION
  Report Type: 
  Country: DE (occurrence: DE)
  Receive Date: 20120830
  Receipt Date: 20120830
  Transmission Date: 20130627
  Serious: Yes (Other)
  Sender: FDA-Public Use
  Company Number: GXKR2012DE002755

PATIENT

DRUGS (14)
  1. PAMIDRONATE [Suspect]
     Dosage: 60 mg/day
     Dates: start: 200705, end: 201007
  2. PAMIDRONATE [Suspect]
     Dosage: 60 mg/day
     Dates: start: 201010, end: 201101
  3. NOVANTRON [Concomitant]
  4. ARIMIDEX ^ASTRAZENECA^ [Concomitant]
  5. AROMASIN [Concomitant]
  6. TAMOXIFEN [Concomitant]
  7. FASLODEX [Concomitant]
  8. HERCEPTIN ^GENENTECH^ [Concomitant]
  9. BISOPROLOL [Concomitant]
  10. LISINOPRIL [Concomitant]
  11. NACOM ^DUPONT PHARMA^ [Concomitant]
  12. SEROQUEL [Concomitant]
  13. HYDROCHLOROTHIAZIDE [Concomitant]
  14. CARMEN [Concomitant]

REACTIONS (1)
  - Osteonecrosis of jaw [Unknown]
